FAERS Safety Report 8201702-1 (Version None)
Quarter: 2012Q1

REPORT INFORMATION
  Report Type: 
  Country: None (occurrence: None)
  Receive Date: 20120312
  Receipt Date: 20120306
  Transmission Date: 20120608
  Serious: Yes (Congenital Anomaly, Other)
  Sender: FDA-Public Use
  Company Number: BE-PFIZER INC-2011097510

PATIENT
  Sex: Male
  Weight: 4.67 kg

DRUGS (1)
  1. ARMODAFINIL [Suspect]
     Indication: SYSTEMIC CANDIDA
     Dosage: 200 MG, UNK
     Route: 064
     Dates: start: 20110303, end: 20110428

REACTIONS (5)
  - CLAVICLE FRACTURE [None]
  - NOONAN SYNDROME [None]
  - MATERNAL EXPOSURE TIMING UNSPECIFIED [None]
  - CRYPTORCHISM [None]
  - MACROSOMIA [None]
